FAERS Safety Report 18228801 (Version 3)
Quarter: 2021Q2

REPORT INFORMATION
  Report Type: Spontaneous
  Country: IT (occurrence: IT)
  Receive Date: 20200903
  Receipt Date: 20210522
  Transmission Date: 20210717
  Serious: Yes (Other)
  Sender: FDA-Public Use
  Company Number: IT-TAKEDA-2020TUS037186

PATIENT
  Sex: Male

DRUGS (2)
  1. BRINTELLIX [Suspect]
     Active Substance: VORTIOXETINE HYDROBROMIDE
     Indication: PRODUCT USED FOR UNKNOWN INDICATION
     Dosage: UNK
     Route: 065
     Dates: end: 201909
  2. RIVOTRIL [Suspect]
     Active Substance: CLONAZEPAM
     Indication: PRODUCT USED FOR UNKNOWN INDICATION
     Dosage: UNK
     Route: 065

REACTIONS (21)
  - Muscular weakness [Unknown]
  - Illness [Unknown]
  - Burning sensation [Unknown]
  - Hyperhidrosis [Unknown]
  - Musculoskeletal chest pain [Unknown]
  - Halo vision [Unknown]
  - Speech disorder [Unknown]
  - Nervous system disorder [Unknown]
  - Dyspnoea [Unknown]
  - Visual impairment [Unknown]
  - Syncope [Unknown]
  - Dysphagia [Unknown]
  - Paraesthesia [Unknown]
  - Confusional state [Unknown]
  - Headache [Unknown]
  - Mood altered [Unknown]
  - Pruritus [Unknown]
  - Autonomic neuropathy [Unknown]
  - Paradoxical drug reaction [Unknown]
  - Malaise [Unknown]
  - Myalgia [Unknown]
